FAERS Safety Report 9677245 (Version 1)
Quarter: 2013Q4

REPORT INFORMATION
  Report Type: Spontaneous
  Country: US (occurrence: None)
  Receive Date: 20131107
  Receipt Date: 20131107
  Transmission Date: 20140711
  Serious: No
  Sender: FDA-Public Use
  Company Number: None

PATIENT
  Age: 12 Year
  Sex: Male
  Weight: 37.2 kg

DRUGS (2)
  1. METHYLPHENIDATE [Suspect]
     Indication: ATTENTION DEFICIT/HYPERACTIVITY DISORDER
     Route: 048
     Dates: start: 20131021, end: 20131105
  2. CHILDREN^S GUMMY VITAMINS [Concomitant]

REACTIONS (5)
  - Product substitution issue [None]
  - Drug ineffective [None]
  - Product quality issue [None]
  - Abnormal behaviour [None]
  - Educational problem [None]
